FAERS Safety Report 16039681 (Version 1)
Quarter: 2019Q1

REPORT INFORMATION
  Report Type: Spontaneous
  Country: GB (occurrence: GB)
  Receive Date: 20190306
  Receipt Date: 20190306
  Transmission Date: 20190418
  Serious: Yes (Other)
  Sender: FDA-Public Use
  Company Number: GB-TEVA-2019-GB-1021126

PATIENT
  Sex: Female

DRUGS (1)
  1. DILTIAZEM HYDROCHLORIDE. [Suspect]
     Active Substance: DILTIAZEM HYDROCHLORIDE
     Dosage: FREQUENCY UNKNOWN

REACTIONS (4)
  - Reaction to excipient [Unknown]
  - Heart rate irregular [Not Recovered/Not Resolved]
  - Product substitution issue [Unknown]
  - Chest discomfort [Not Recovered/Not Resolved]
